FAERS Safety Report 11310712 (Version 1)
Quarter: 2015Q3

REPORT INFORMATION
  Report Type: Spontaneous
  Country: US (occurrence: US)
  Receive Date: 20150725
  Receipt Date: 20150725
  Transmission Date: 20151125
  Serious: Yes (Hospitalization, Congenital Anomaly, Other)
  Sender: FDA-Public Use
  Company Number: US-APOTEX-2015AP007867

PATIENT
  Age: 0 Day
  Sex: Male
  Weight: 1.18 kg

DRUGS (2)
  1. BRETHINE [Concomitant]
     Active Substance: TERBUTALINE SULFATE
     Indication: UTERINE HYPERTONUS
     Route: 064
  2. PAROXETINE HYDROCHLORIDE. [Suspect]
     Active Substance: PAROXETINE HYDROCHLORIDE
     Indication: PRODUCT USED FOR UNKNOWN INDICATION
     Dosage: 20 MG, UNK
     Route: 064
     Dates: start: 20041124

REACTIONS (10)
  - Microcephaly [Unknown]
  - Arrhythmia [Unknown]
  - Premature baby [Unknown]
  - Foetal exposure during pregnancy [Unknown]
  - Failure to thrive [Unknown]
  - Dyspnoea [Unknown]
  - Low birth weight baby [Unknown]
  - Speech disorder developmental [Unknown]
  - Cryptorchism [Unknown]
  - Feeding disorder of infancy or early childhood [Unknown]

NARRATIVE: CASE EVENT DATE: 20050704
